FAERS Safety Report 5044360-X (Version None)
Quarter: 2006Q2

REPORT INFORMATION
  Report Type: 
  Country: None (occurrence: None)
  Receive Date: 20060629
  Receipt Date: 20060606
  Transmission Date: 20061013
  Serious: Yes (Other)
  Sender: FDA-Public Use
  Company Number: 2006077554

PATIENT
  Age: 91 Year
  Sex: Female

DRUGS (3)
  1. XALATAN [Suspect]
     Dosage: 1 DROP (1 DROP, 1 IN 1 D), OPHTHALMIC
     Route: 047
     Dates: start: 20051001
  2. TRUSOPT [Concomitant]
  3. DURATEARS (BENZALKONIUM CHLORIDE, EDETATE DISODIUM, HYPROMELLOSE, POTA [Concomitant]

REACTIONS (6)
  - BACK PAIN [None]
  - DRUG ADMINISTRATION ERROR [None]
  - OESOPHAGEAL PAIN [None]
  - PHARYNGEAL OEDEMA [None]
  - PHARYNGOLARYNGEAL PAIN [None]
  - VOMITING [None]
